FAERS Safety Report 5155496-7 (Version None)
Quarter: 2006Q4

REPORT INFORMATION
  Report Type: 
  Country: None (occurrence: None)
  Receive Date: 20061114
  Receipt Date: 20061030
  Transmission Date: 20070319
  Serious: Yes (Other)
  Sender: FDA-Public Use
  Company Number: 231090

PATIENT
  Age: 64 Year
  Sex: Female

DRUGS (10)
  1. AVASTIN [Suspect]
     Indication: DRUG USE FOR UNKNOWN INDICATION
     Dosage: 10 MG/KG, Q2W, UNK
     Dates: start: 20060907
  2. DURAGESIC-100 [Concomitant]
  3. DILAUDID [Concomitant]
  4. ACTIQ (SUGAR-FREE) [Concomitant]
  5. ATIVAN [Concomitant]
  6. TAPAZOLE [Concomitant]
  7. TOPROL-XL [Concomitant]
  8. PROVIGIL [Concomitant]
  9. CELEBREX [Concomitant]
  10. PROTONIX [Concomitant]

REACTIONS (2)
  - FALL [None]
  - FRACTURE [None]
